FAERS Safety Report 5937732-X (Version None)
Quarter: 2008Q4

REPORT INFORMATION
  Report Type: 
  Country: None (occurrence: None)
  Receive Date: 20081031
  Receipt Date: 20080324
  Transmission Date: 20090506
  Serious: No
  Sender: FDA-Public Use
  Company Number: US-BAYER-200811303BCC

PATIENT
  Age: 83 Year
  Sex: Female
  Weight: 91 kg

DRUGS (11)
  1. ALEVE (CAPLET) [Suspect]
     Indication: BONE PAIN
     Route: 048
     Dates: start: 20080322
  2. SPIRIVA [Concomitant]
  3. ADVAIR DISKUS 100/50 [Concomitant]
  4. LEVOTHYROXINE SODIUM [Concomitant]
  5. CELEBREX [Concomitant]
  6. BONIVA [Concomitant]
  7. CENTRUM SILVER [Concomitant]
  8. CALCIUM [Concomitant]
  9. BIOTIN [Concomitant]
  10. ACIDOPHILUS [Concomitant]
  11. DILTIAZEM HCL [Concomitant]

REACTIONS (1)
  - CONSTIPATION [None]
